FAERS Safety Report 7957658-X (Version None)
Quarter: 2011Q4

REPORT INFORMATION
  Report Type: 
  Country: None (occurrence: None)
  Receive Date: 20111205
  Receipt Date: 20111125
  Transmission Date: 20120403
  Serious: Yes (Hospitalization, Other)
  Sender: FDA-Public Use
  Company Number: PHHY2011JP94619

PATIENT
  Sex: Female
  Weight: 49 kg

DRUGS (7)
  1. ERISPAN [Concomitant]
     Route: 048
  2. SAIKOKEISHITOU [Concomitant]
     Route: 048
  3. URSO 250 [Concomitant]
     Indication: HEPATITIS C
     Dosage: UNK UKN, UNK
     Route: 048
     Dates: start: 20040302
  4. MUCOSTA [Concomitant]
     Indication: GASTRITIS
     Dosage: UNK UKN, UNK
     Route: 048
     Dates: start: 20090113
  5. TEGRETOL [Suspect]
     Indication: TRIGEMINAL NEURALGIA
     Dosage: 200 MG
     Route: 048
     Dates: start: 20081217, end: 20081222
  6. SEDIEL [Concomitant]
     Route: 048
  7. TOLEDOMIN [Concomitant]
     Route: 048

REACTIONS (4)
  - INAPPROPRIATE ANTIDIURETIC HORMONE SECRETION [None]
  - MALAISE [None]
  - CHEST DISCOMFORT [None]
  - DYSSTASIA [None]
